FAERS Safety Report 6171538-4 (Version None)
Quarter: 2009Q2

REPORT INFORMATION
  Report Type: 
  Country: None (occurrence: None)
  Receive Date: 20090429
  Receipt Date: 20090417
  Transmission Date: 20091009
  Serious: Yes (Other)
  Sender: FDA-Public Use
  Company Number: JP-PFIZER INC-2009189672

PATIENT

DRUGS (3)
  1. CAMPTOSAR [Suspect]
     Indication: NEUROBLASTOMA
     Dosage: UNK
     Route: 041
  2. ETOPOSIDE [Concomitant]
     Indication: NEUROBLASTOMA
     Route: 041
  3. CARBOPLATIN [Concomitant]
     Indication: NEUROBLASTOMA
     Route: 041

REACTIONS (1)
  - TUMOUR LYSIS SYNDROME [None]
